FAERS Safety Report 17186181 (Version 1)
Quarter: 2019Q4

REPORT INFORMATION
  Report Type: Spontaneous
  Country: SE (occurrence: SE)
  Receive Date: 20191220
  Receipt Date: 20191220
  Transmission Date: 20200122
  Serious: Yes (Hospitalization)
  Sender: FDA-Public Use
  Company Number: SE-MYLANLABS-2019M1126685

PATIENT
  Age: 47 Year
  Sex: Male

DRUGS (4)
  1. METOPROLOL. [Suspect]
     Active Substance: METOPROLOL
     Indication: PRODUCT USED FOR UNKNOWN INDICATION
     Dosage: 25 ST A 50 MG
     Route: 048
     Dates: start: 20190114, end: 20190114
  2. LERGIGAN (PROMETHAZINE) [Suspect]
     Active Substance: PROMETHAZINE HYDROCHLORIDE
     Indication: PRODUCT USED FOR UNKNOWN INDICATION
     Dosage: 50 ST A 50 MG
     Route: 048
     Dates: start: 20190114, end: 20190114
  3. TRANON [Suspect]
     Active Substance: TRANEXAMIC ACID
     Indication: PRODUCT USED FOR UNKNOWN INDICATION
     Dosage: 50 ST A 5 MG
     Dates: start: 20190114, end: 20190114
  4. MIRTAZAPINE. [Suspect]
     Active Substance: MIRTAZAPINE
     Indication: PRODUCT USED FOR UNKNOWN INDICATION
     Dosage: 12-14 ST A 15 MG
     Route: 048
     Dates: start: 20190114, end: 20190114

REACTIONS (4)
  - Intentional self-injury [Unknown]
  - Hallucination [Unknown]
  - Intentional overdose [Unknown]
  - Vomiting [Unknown]

NARRATIVE: CASE EVENT DATE: 20190114
